FAERS Safety Report 5053511-2 (Version None)
Quarter: 2006Q3

REPORT INFORMATION
  Report Type: 
  Country: None (occurrence: None)
  Receive Date: 20060718
  Receipt Date: 20060622
  Transmission Date: 20061208
  Serious: Yes (Other)
  Sender: FDA-Public Use
  Company Number: PHEH2006US08126

PATIENT
  Age: 67 Year
  Sex: Female
  Weight: 81.632 kg

DRUGS (1)
  1. ELIDEL [Suspect]
     Indication: ECZEMA
     Dosage: UNK, BID
     Route: 061
     Dates: start: 20050609, end: 20050801

REACTIONS (2)
  - BIOPSY SKIN [None]
  - MALIGNANT MELANOMA IN SITU [None]
